FAERS Safety Report 6265908-3 (Version None)
Quarter: 2009Q3

REPORT INFORMATION
  Report Type: 
  Country: None (occurrence: None)
  Receive Date: 20090713
  Receipt Date: 20090630
  Transmission Date: 20100115
  Serious: Yes (Hospitalization)
  Sender: FDA-Public Use
  Company Number: PHHY2009JP26940

PATIENT

DRUGS (15)
  1. DIOVAN [Suspect]
     Dosage: 160 MG IN THE MORNING AND 80 MG IN THE EVENING
     Route: 048
  2. NOVOLIN [Concomitant]
  3. CARTARETIN [Concomitant]
  4. NIFEDIPINE [Concomitant]
  5. CARDENALIN [Concomitant]
     Dosage: 1 DF, UNK
  6. SELBEX [Concomitant]
     Dosage: UNK
  7. PANTOSIN [Concomitant]
  8. GASMOTIN [Concomitant]
  9. LANDSEN [Concomitant]
  10. BLONANSERIN [Concomitant]
  11. DEPAKENE [Concomitant]
  12. ALOSENN [Concomitant]
  13. FLUNITRAZEPAM [Concomitant]
     Dosage: 1 DF, UNK
  14. LENDORMIN [Concomitant]
  15. LAXOBERON [Concomitant]

REACTIONS (2)
  - DIABETES MELLITUS INADEQUATE CONTROL [None]
  - HYPOGLYCAEMIA [None]
